FAERS Safety Report 20409794 (Version 1)
Quarter: 2022Q1

REPORT INFORMATION
  Report Type: Spontaneous
  Country: US (occurrence: US)
  Receive Date: 20220201
  Receipt Date: 20220201
  Transmission Date: 20220423
  Serious: No
  Sender: FDA-Public Use
  Company Number: US-SAREPTA THERAPEUTICS INC.-SRP2021-001819

PATIENT
  Age: 7 Year
  Sex: Male
  Weight: 28.118 kg

DRUGS (11)
  1. AMONDYS 45 [Suspect]
     Active Substance: CASIMERSEN
     Indication: Duchenne muscular dystrophy
     Dosage: 700 MILLIGRAM, WEEKLY
     Route: 042
  2. AMONDYS 45 [Suspect]
     Active Substance: CASIMERSEN
     Dosage: 900 MILLIGRAM, WEEKLY
     Route: 042
     Dates: start: 20211122
  3. MELATONIN [Concomitant]
     Active Substance: MELATONIN
     Indication: Product used for unknown indication
     Dosage: 1 MILLIGRAM, HS
     Route: 048
  4. PREDNISOLONE [Concomitant]
     Active Substance: PREDNISOLONE
     Indication: Product used for unknown indication
     Dosage: UNKNOWN, START OF THE DAY
     Dates: start: 20210823
  5. SODIUM PHOSPHATE [Concomitant]
     Active Substance: SODIUM PHOSPHATE
     Indication: Product used for unknown indication
     Dosage: 15MG/5ML,  6 ML FOR 180 DAYS
     Route: 048
  6. ERGOCALCIFEROL [Concomitant]
     Active Substance: ERGOCALCIFEROL
     Indication: Product used for unknown indication
     Dosage: 200 MICROGRAM/MILLILITER, QD
     Route: 048
     Dates: start: 20210823
  7. FAMOTIDINE [Concomitant]
     Active Substance: FAMOTIDINE
     Indication: Product used for unknown indication
     Dosage: 40 MILLIGRAM/5 MILLILITER, 1.5 MILLILITER TWICE PER DAY
     Route: 048
     Dates: start: 20210823
  8. FLUTICASONE [Concomitant]
     Active Substance: FLUTICASONE
     Indication: Product used for unknown indication
     Dosage: 1 SPRAY EACH NOSTRIL
     Dates: start: 20210823
  9. LORATADINE [Concomitant]
     Active Substance: LORATADINE
     Indication: Product used for unknown indication
     Dosage: 5 MILLIGRAM/5MILLILITER OR 1MLILLILITER QD
     Dates: start: 20210823
  10. IRON\VITAMINS [Concomitant]
     Active Substance: IRON\VITAMINS
     Indication: Product used for unknown indication
     Dosage: UNK, QD
     Route: 048
     Dates: start: 20210823
  11. CETIRIZINE [Concomitant]
     Active Substance: CETIRIZINE HYDROCHLORIDE
     Indication: Respiratory tract congestion
     Dosage: 1MG/ML 2.5ML PRO RE NATA
     Route: 048
     Dates: start: 20210823

REACTIONS (3)
  - Underdose [Unknown]
  - Product communication issue [Unknown]
  - No adverse event [Unknown]

NARRATIVE: CASE EVENT DATE: 20211014
